FAERS Safety Report 11758709 (Version 3)
Quarter: 2016Q2

REPORT INFORMATION
  Report Type: Report from Study
  Country: US (occurrence: US)
  Receive Date: 20151120
  Receipt Date: 20160419
  Transmission Date: 20160815
  Serious: Yes (Hospitalization)
  Sender: FDA-Public Use
  Company Number: US-SA-2015SA186344

PATIENT
  Age: 50 Year
  Sex: Male

DRUGS (1)
  1. LEMTRADA [Suspect]
     Active Substance: ALEMTUZUMAB
     Indication: MULTIPLE SCLEROSIS
     Route: 041
     Dates: start: 20151028, end: 20151030

REACTIONS (8)
  - Upper respiratory tract infection [Unknown]
  - Feeling abnormal [Unknown]
  - Rash pruritic [Not Recovered/Not Resolved]
  - Sinusitis [Unknown]
  - Rash erythematous [Not Recovered/Not Resolved]
  - Hyperglycaemia [Not Recovered/Not Resolved]
  - Erythema [Unknown]
  - Underdose [Unknown]

NARRATIVE: CASE EVENT DATE: 2015
